FAERS Safety Report 5072572-8 (Version None)
Quarter: 2006Q3

REPORT INFORMATION
  Report Type: 
  Country: None (occurrence: None)
  Receive Date: 20060801
  Receipt Date: 20060706
  Transmission Date: 20061208
  Serious: Yes (Hospitalization)
  Sender: FDA-Public Use
  Company Number: BR200607002074

PATIENT
  Age: 75 Year
  Sex: Female
  Weight: 54 kg

DRUGS (15)
  1. FORTEO [Suspect]
     Indication: OSTEOPOROSIS
     Dosage: 20 UG, DAILY (1/D), SUBCUTANEOUS
     Route: 058
     Dates: start: 20040709
  2. FORTEO [Concomitant]
  3. CARDIZEM [Concomitant]
  4. CITALOPRAM HYDROBROMIDE [Concomitant]
  5. CORTISONE [Concomitant]
  6. CRESTOR [Concomitant]
  7. DEFLAZACORT [Concomitant]
  8. FLUTICASONE PROPIONATE [Concomitant]
  9. LEXOTAN (BROMAZEPAM) [Concomitant]
  10. NATRILIX (INDAPAMIDE) [Concomitant]
  11. ESOMEPRAZOLE MAGNESIUM [Concomitant]
  12. TICLOPIDINE [Concomitant]
  13. SEREETIDE ^GLAXO WELLCOME^ (FLUTICASONE PROPIONATE, SALMETEROL XINAFOA [Concomitant]
  14. MONTELUKAST SODIUM [Concomitant]
  15. SUSTRATE (PROPATYLNITRATE) [Concomitant]

REACTIONS (1)
  - ASTHMA [None]
